FAERS Safety Report 9325233 (Version 1)
Quarter: 2013Q2

REPORT INFORMATION
  Report Type: Spontaneous
  Country: US (occurrence: US)
  Receive Date: 20130604
  Receipt Date: 20130604
  Transmission Date: 20140414
  Serious: Yes (Hospitalization)
  Sender: FDA-Public Use
  Company Number: US-AMGEN-USASP2013038754

PATIENT
  Age: 61 Year
  Sex: Female

DRUGS (2)
  1. ENBREL [Suspect]
     Indication: RHEUMATOID ARTHRITIS
     Dosage: UNK, 2 TIMES/WK
     Dates: start: 2000
  2. ANTIBIOTICS [Suspect]
     Dosage: UNK

REACTIONS (13)
  - Impaired healing [Recovered/Resolved]
  - Loss of consciousness [Recovered/Resolved]
  - Bunion [Recovered/Resolved]
  - Rash generalised [Recovered/Resolved]
  - Dehydration [Recovered/Resolved]
  - Staphylococcal infection [Recovered/Resolved]
  - Gastrointestinal infection [Recovered/Resolved]
  - Asthenia [Recovered/Resolved]
  - Osteoarthritis [Not Recovered/Not Resolved]
  - Fall [Unknown]
  - Joint injury [Not Recovered/Not Resolved]
  - Limb injury [Not Recovered/Not Resolved]
  - Injection site pain [Recovered/Resolved]
